FAERS Safety Report 24918298 (Version 1)
Quarter: 2025Q1

REPORT INFORMATION
  Report Type: Spontaneous
  Country: US (occurrence: US)
  Receive Date: 20250203
  Receipt Date: 20250203
  Transmission Date: 20250408
  Serious: No
  Sender: PFIZER
  Company Number: US-PFIZER INC-PV202500012012

PATIENT
  Age: 21 Year

DRUGS (1)
  1. VISTARIL [Suspect]
     Active Substance: HYDROXYZINE PAMOATE
     Route: 048
     Dates: start: 20240314

REACTIONS (2)
  - Tri-iodothyronine free decreased [Unknown]
  - Blood glucose decreased [Unknown]

NARRATIVE: CASE EVENT DATE: 20240429
